FAERS Safety Report 16873657 (Version 2)
Quarter: 2019Q4

REPORT INFORMATION
  Report Type: Spontaneous
  Country: CZ (occurrence: CZ)
  Receive Date: 20191001
  Receipt Date: 20191211
  Transmission Date: 20200122
  Serious: Yes (Life-Threatening, Other)
  Sender: FDA-Public Use
  Company Number: CZ-AMERICAN REGENT INC-20191038

PATIENT
  Age: 3 Day
  Sex: Male
  Weight: 2.08 kg

DRUGS (6)
  1. MALTOFER (IRON POLYMALTOSE) [Suspect]
     Active Substance: IRON POLYMALTOSE
     Indication: FOETAL EXPOSURE DURING PREGNANCY
     Dosage: UNKNOWN
     Route: 064
  2. DETRALEX [Suspect]
     Active Substance: DIOSMIN\HESPERIDIN
     Indication: FOETAL EXPOSURE DURING PREGNANCY
     Dosage: UNKNOWN
     Route: 064
  3. FERINJECT [Suspect]
     Active Substance: FERRIC CARBOXYMALTOSE
     Indication: FOETAL EXPOSURE DURING PREGNANCY
     Dosage: UNKNOWN
     Route: 064
  4. VENOFER [Suspect]
     Active Substance: IRON SUCROSE
     Indication: FOETAL EXPOSURE DURING PREGNANCY
     Dosage: UNKNOWN
     Route: 064
  5. BETAXOLOL. [Suspect]
     Active Substance: BETAXOLOL
     Indication: HYPERTENSION
  6. BETAXOLOL. [Suspect]
     Active Substance: BETAXOLOL
     Indication: FOETAL EXPOSURE DURING PREGNANCY
     Dosage: UNKNOWN
     Route: 064

REACTIONS (8)
  - Seizure [Recovered/Resolved]
  - Hyperinsulinism [Recovered/Resolved]
  - Hypotonia neonatal [Recovered/Resolved]
  - Oxygen saturation decreased [Recovered/Resolved]
  - Foetal exposure during pregnancy [Recovered/Resolved]
  - Neonatal seizure [Recovered/Resolved]
  - Bradycardia neonatal [Recovered/Resolved]
  - Atrophy [Recovered/Resolved]
